FAERS Safety Report 6269954-5 (Version None)
Quarter: 2009Q3

REPORT INFORMATION
  Report Type: 
  Country: None (occurrence: None)
  Receive Date: 20090716
  Receipt Date: 20090706
  Transmission Date: 20100115
  Serious: Yes (Other)
  Sender: FDA-Public Use
  Company Number: US-ROCHE-633847

PATIENT
  Sex: Male

DRUGS (3)
  1. MYCOPHENOLATE MOFETIL [Suspect]
     Indication: RENAL TRANSPLANT
     Route: 065
     Dates: start: 20070612
  2. CYCLOSPORINE [Suspect]
     Indication: RENAL TRANSPLANT
     Route: 048
     Dates: start: 20070613
  3. PREDNISONE TAB [Suspect]
     Indication: RENAL TRANSPLANT
     Route: 065
     Dates: start: 20070614

REACTIONS (2)
  - ACANTHOMA [None]
  - BASAL CELL CARCINOMA [None]
